FAERS Safety Report 8808118 (Version 1)
Quarter: 2012Q4

REPORT INFORMATION
  Report Type: 
  Country: GB (occurrence: GB)
  Receive Date: 20120925
  Receipt Date: 20120925
  Transmission Date: 20130627
  Serious: Yes (Other)
  Sender: FDA-Public Use
  Company Number: PHHY2012GB081512

PATIENT
  Age: 80 Year
  Sex: Male
  Weight: 63 kg

DRUGS (7)
  1. WARFARIN [Suspect]
     Dosage: 3 mg, daily
     Route: 048
     Dates: start: 201006
  2. EBIXA [Interacting]
     Indication: DEMENTIA ALZHEIMER^S TYPE
     Dosage: 20 mg, daily
     Route: 048
     Dates: start: 20120730
  3. ATORVASTATIN [Concomitant]
     Dosage: 40 mg, daily
     Route: 048
     Dates: start: 200307
  4. BISOPROLOL [Concomitant]
     Dosage: 1.25 mg, daily
     Route: 048
     Dates: start: 201204
  5. FUROSEMIDE [Concomitant]
     Dosage: 40 mg, daily
     Route: 048
     Dates: start: 201202
  6. RAMIPRIL [Concomitant]
     Dosage: 2.5 mg
     Route: 048
     Dates: start: 201204
  7. SPIRONOLACTONE [Concomitant]
     Dosage: 25 mg, daily
     Route: 048
     Dates: start: 201204

REACTIONS (2)
  - International normalised ratio increased [Unknown]
  - Drug interaction [Unknown]
